FAERS Safety Report 10816560 (Version 5)
Quarter: 2015Q3

REPORT INFORMATION
  Report Type: Spontaneous
  Country: US (occurrence: US)
  Receive Date: 20150218
  Receipt Date: 20150807
  Transmission Date: 20151125
  Serious: Yes (Other)
  Sender: FDA-Public Use
  Company Number: US-ALLERGAN-1502415US

PATIENT
  Age: 63 Year
  Sex: Female
  Weight: 54.42 kg

DRUGS (1)
  1. RESTASIS [Suspect]
     Active Substance: CYCLOSPORINE
     Indication: DRY EYE
     Dosage: 1 DROP TWICE DAILY
     Route: 047
     Dates: start: 2000

REACTIONS (6)
  - Neoplasm skin [Unknown]
  - Medical device removal [Unknown]
  - Dermal cyst [Unknown]
  - Neoplasm skin [Unknown]
  - Joint injury [Unknown]
  - Back pain [Recovered/Resolved]

NARRATIVE: CASE EVENT DATE: 2010
